FAERS Safety Report 16901182 (Version 1)
Quarter: 2019Q4

REPORT INFORMATION
  Report Type: Spontaneous
  Country: US (occurrence: US)
  Receive Date: 20191009
  Receipt Date: 20191009
  Transmission Date: 20200122
  Serious: No
  Sender: FDA-Public Use
  Company Number: US-009507513-1910USA006844

PATIENT
  Age: 27 Year
  Sex: Female
  Weight: 73.2 kg

DRUGS (1)
  1. NEXPLANON [Suspect]
     Active Substance: ETONOGESTREL
     Dosage: 1 IMPLANT
     Route: 059

REACTIONS (5)
  - Device deployment issue [Unknown]
  - Product quality issue [Unknown]
  - Complication of device insertion [Unknown]
  - Device difficult to use [Unknown]
  - No adverse event [Unknown]

NARRATIVE: CASE EVENT DATE: 20190924
